FAERS Safety Report 9221453 (Version 1)
Quarter: 2013Q2

REPORT INFORMATION
  Report Type: Spontaneous
  Country: BR (occurrence: BR)
  Receive Date: 20130410
  Receipt Date: 20130410
  Transmission Date: 20140414
  Serious: Yes (Other)
  Sender: FDA-Public Use
  Company Number: BR-ABBOTT-13X-020-1073744-00

PATIENT
  Sex: Female

DRUGS (3)
  1. DEPAKENE [Suspect]
     Indication: EPILEPSY
  2. DEPAKOTE [Concomitant]
     Indication: EPILEPSY
  3. HUMIRA [Concomitant]
     Indication: RHEUMATOID ARTHRITIS

REACTIONS (3)
  - Epilepsy [Recovered/Resolved]
  - Condition aggravated [Recovered/Resolved]
  - Drug ineffective [Unknown]
